FAERS Safety Report 16803708 (Version 1)
Quarter: 2019Q3

REPORT INFORMATION
  Report Type: Spontaneous
  Country: SE (occurrence: SE)
  Receive Date: 20190913
  Receipt Date: 20190913
  Transmission Date: 20191005
  Serious: Yes (Hospitalization)
  Sender: FDA-Public Use
  Company Number: SE-TEVA-2019-SE-1105979

PATIENT
  Age: 25 Year
  Sex: Male

DRUGS (2)
  1. TIPAROL [Suspect]
     Active Substance: TRAMADOL HYDROCHLORIDE
     Dosage: ^TOM ASK^
     Route: 048
     Dates: start: 20190121, end: 20190121
  2. LERGIGAN (PROMETHAZINE HYDROCHLORIDE) [Suspect]
     Active Substance: PROMETHAZINE HYDROCHLORIDE
     Dosage: ^TOM BURK^
     Route: 048
     Dates: start: 20190121, end: 20190121

REACTIONS (6)
  - Intentional overdose [Unknown]
  - Hallucination, visual [Unknown]
  - Urinary incontinence [Unknown]
  - Electrocardiogram ST segment abnormal [Unknown]
  - Intentional self-injury [Unknown]
  - Sinus tachycardia [Unknown]

NARRATIVE: CASE EVENT DATE: 20190121
